FAERS Safety Report 6387796-7 (Version None)
Quarter: 2009Q4

REPORT INFORMATION
  Report Type: 
  Country: None (occurrence: None)
  Receive Date: 20091005
  Receipt Date: 20090930
  Transmission Date: 20100525
  Serious: Yes (Death, Other)
  Sender: FDA-Public Use
  Company Number: US-BAYER-200925278GPV

PATIENT

DRUGS (4)
  1. SORAFENIB [Suspect]
     Indication: ACUTE MYELOID LEUKAEMIA
     Route: 048
  2. SORAFENIB [Suspect]
     Route: 048
  3. CYTARABINE [Concomitant]
     Indication: ACUTE MYELOID LEUKAEMIA
     Dosage: 3 DAYS, 4 DAYS FOR PATIENTS } 60 YEARS OF AGE
     Route: 042
  4. IDARUBICIN HCL [Concomitant]
     Indication: ACUTE MYELOID LEUKAEMIA
     Dosage: OVER 1 H
     Route: 042

REACTIONS (12)
  - BLOOD CREATININE INCREASED [None]
  - CARDIAC DISORDER [None]
  - COLITIS [None]
  - DIARRHOEA [None]
  - HEPATIC ENZYME INCREASED [None]
  - HYPERBILIRUBINAEMIA [None]
  - HYPERTENSION [None]
  - PALMAR-PLANTAR ERYTHRODYSAESTHESIA SYNDROME [None]
  - PANCREATITIS [None]
  - PERICARDITIS [None]
  - PNEUMONIA [None]
  - RASH [None]
